FAERS Safety Report 5316140-9 (Version None)
Quarter: 2007Q2

REPORT INFORMATION
  Report Type: 
  Country: None (occurrence: None)
  Receive Date: 20070503
  Receipt Date: 20070420
  Transmission Date: 20071010
  Serious: Yes (Death)
  Sender: FDA-Public Use
  Company Number: US-ELI_LILLY_AND_COMPANY-US200704004588

PATIENT
  Age: 48 Year
  Sex: Female

DRUGS (5)
  1. CYMBALTA [Suspect]
  2. FENTANYL [Concomitant]
  3. ALPRAZOLAM [Concomitant]
  4. PAROXETINE [Concomitant]
  5. BENADRYL [Concomitant]

REACTIONS (1)
  - DEATH [None]
